FAERS Safety Report 23755929 (Version 1)
Quarter: 2024Q2

REPORT INFORMATION
  Report Type: Spontaneous
  Country: US (occurrence: US)
  Receive Date: 20240418
  Receipt Date: 20240418
  Transmission Date: 20240716
  Serious: No
  Sender: FDA-Public Use
  Company Number: US-ALVOGEN-2023092752

PATIENT

DRUGS (3)
  1. MACRODANTIN [Suspect]
     Active Substance: NITROFURANTOIN
     Indication: Urinary tract infection
     Dosage: ON IT FOR ABOUT 2 AND HALF WEEKS
  2. SERTRALINE [Suspect]
     Active Substance: SERTRALINE HYDROCHLORIDE
     Indication: Product used for unknown indication
  3. PAXLOVID [Suspect]
     Active Substance: NIRMATRELVIR\RITONAVIR
     Indication: COVID-19
     Dosage: EXPIRY DATE: 31-JAN-2024?NDC: 0069034530
     Dates: start: 20231207

REACTIONS (3)
  - COVID-19 [Unknown]
  - Dysgeusia [Unknown]
  - Unevaluable event [Unknown]
